FAERS Safety Report 8544584 (Version 2)
Quarter: 2013Q1

REPORT INFORMATION
  Report Type: Report from Study
  Country: IT (occurrence: IT)
  Receive Date: 20120503
  Receipt Date: 20130204
  Transmission Date: 20140127
  Serious: Yes (Hospitalization)
  Sender: FDA-Public Use
  Company Number: IT-ROCHE-1063346

PATIENT
  Age: 66 Year
  Sex: Male

DRUGS (3)
  1. BEVACIZUMAB [Suspect]
     Indication: COLON CANCER
     Dosage: THERAPY END DATE: 21/MAR/2012
     Route: 042
     Dates: start: 20120321
  2. APROVEL [Concomitant]
     Route: 048
  3. LANSOPRAZOLE [Concomitant]
     Dosage: DRUG NAME REPORTED AS LANSOPRAZOLO 30
     Route: 048

REACTIONS (4)
  - Diarrhoea [Recovered/Resolved]
  - Vomiting [Recovered/Resolved]
  - Dehydration [Recovered/Resolved]
  - Blood creatine increased [Recovered/Resolved]
